FAERS Safety Report 9193729 (Version 3)
Quarter: 2014Q1

REPORT INFORMATION
  Report Type: Spontaneous
  Country: US (occurrence: None)
  Receive Date: 20120703
  Receipt Date: 20130724
  Transmission Date: 20141002
  Serious: No
  Sender: FDA-Public Use
  Company Number: PHEH2012US006060

PATIENT
  Age: 47 Year
  Sex: Female

DRUGS (1)
  1. GILENYA (FTY) CAPSULE [Suspect]
     Indication: MULTIPLE SCLEROSIS
     Route: 048
     Dates: start: 20120314

REACTIONS (3)
  - Palpitations [None]
  - Feeling hot [None]
  - Blood pressure increased [None]
